FAERS Safety Report 5721843-8 (Version None)
Quarter: 2008Q2

REPORT INFORMATION
  Report Type: 
  Country: None (occurrence: None)
  Receive Date: 20080429
  Receipt Date: 20070614
  Transmission Date: 20081010
  Serious: No
  Sender: FDA-Public Use
  Company Number: US-ASTRAZENECA-2007UW14274

PATIENT
  Age: 34 Year
  Sex: Female
  Weight: 54 kg

DRUGS (2)
  1. NEXIUM [Suspect]
     Indication: STOMACH DISCOMFORT
     Route: 048
  2. CELEXA [Concomitant]

REACTIONS (5)
  - DIZZINESS [None]
  - DYSURIA [None]
  - INSOMNIA [None]
  - PRURITUS [None]
  - VISION BLURRED [None]
